FAERS Safety Report 13306259 (Version 3)
Quarter: 2017Q2

REPORT INFORMATION
  Report Type: Report from Study
  Country: US (occurrence: BR)
  Receive Date: 20170308
  Receipt Date: 20170623
  Transmission Date: 20170830
  Serious: Yes (Other)
  Sender: FDA-Public Use
  Company Number: US-SUNOVION-2017SUN000980

PATIENT
  Sex: Male
  Weight: 84 kg

DRUGS (2)
  1. OXIMAX [Concomitant]
     Active Substance: MOMETASONE FUROATE
     Dosage: UNK (AT NIGHT)
  2. INDACATEROL AND GLYCOPYRROLATE [Suspect]
     Active Substance: GLYCOPYRROLATE\INDACATEROL MALEATE
     Indication: GASTROOESOPHAGEAL REFLUX DISEASE
     Dosage: UNK; EARLY IN THE MORNING (QD)
     Route: 055
     Dates: start: 201702

REACTIONS (8)
  - Aspiration [Unknown]
  - Headache [Unknown]
  - Product use in unapproved indication [Unknown]
  - Respiratory rate decreased [Unknown]
  - Lung infection [Unknown]
  - Fatigue [Recovering/Resolving]
  - Dysphonia [Recovered/Resolved]
  - Dizziness [Unknown]
